FAERS Safety Report 16500212 (Version 1)
Quarter: 2019Q3

REPORT INFORMATION
  Report Type: Spontaneous
  Country: DE (occurrence: DE)
  Receive Date: 20190701
  Receipt Date: 20190701
  Transmission Date: 20191004
  Serious: Yes (Other)
  Sender: FDA-Public Use
  Company Number: DE-ACCORD-136163

PATIENT
  Age: 38 Year
  Sex: Female
  Weight: 51 kg

DRUGS (4)
  1. LEVOTHYROXINE SODIUM/POTASSIUM IODIDE [Concomitant]
     Indication: HYPOTHYROIDISM
     Dosage: 100 MCG/D(BIS 50) /150MCG/D
     Route: 048
     Dates: start: 20171123, end: 20180824
  2. FOLIC ACID ABZ [Concomitant]
     Active Substance: FOLIC ACID
     Indication: PROPHYLAXIS OF NEURAL TUBE DEFECT
     Dosage: 5 MG/D
     Route: 048
     Dates: start: 20171123, end: 20180824
  3. SERTRALINE [Suspect]
     Active Substance: SERTRALINE HYDROCHLORIDE
     Indication: DEPRESSION
     Dosage: 50 MG/D
     Route: 048
     Dates: start: 20171123, end: 20180824
  4. VIGANTOL [Concomitant]
     Indication: VITAMIN D DEFICIENCY
     Dosage: 1000 IE/D
     Route: 048

REACTIONS (4)
  - Pre-eclampsia [Recovered/Resolved]
  - Puerperal pyrexia [Recovered/Resolved]
  - Maternal exposure during pregnancy [Unknown]
  - Reversible cerebral vasoconstriction syndrome [Recovered/Resolved]
